FAERS Safety Report 16636333 (Version 1)
Quarter: 2019Q3

REPORT INFORMATION
  Report Type: Spontaneous
  Country: US (occurrence: US)
  Receive Date: 20190726
  Receipt Date: 20190726
  Transmission Date: 20191004
  Serious: Yes (Life-Threatening, Hospitalization, Other)
  Sender: FDA-Public Use
  Company Number: US-PFIZER INC-2019314468

PATIENT
  Age: 26 Year
  Sex: Female

DRUGS (2)
  1. VIRACEPT [Suspect]
     Active Substance: NELFINAVIR MESYLATE
     Dosage: 1250 MG, 2X/DAY
  2. COMBIVIR [Suspect]
     Active Substance: LAMIVUDINE\ZIDOVUDINE
     Dosage: UNK, DAILY (1 TABLET)

REACTIONS (2)
  - Toxic epidermal necrolysis [Unknown]
  - Maternal exposure during pregnancy [Unknown]
